FAERS Safety Report 14449577 (Version 2)
Quarter: 2018Q1

REPORT INFORMATION
  Report Type: Spontaneous
  Country: IN (occurrence: IN)
  Receive Date: 20180128
  Receipt Date: 20180208
  Transmission Date: 20180509
  Serious: Yes (Other)
  Sender: FDA-Public Use
  Company Number: IN-TORRENT-00001569

PATIENT
  Age: 49 Year
  Sex: Male
  Weight: 90 kg

DRUGS (5)
  1. TORSEMIDE. [Suspect]
     Active Substance: TORSEMIDE
     Indication: HYPERTENSION
     Dosage: P.O.
     Route: 048
  2. TELMISARTAN AND CHLORTHALIDONE [Suspect]
     Active Substance: CHLORTHALIDONE\TELMISARTAN
     Indication: HYPERTENSION
     Dosage: P.O.
     Route: 048
  3. OLMESARTAN MEDOXOMIL. [Suspect]
     Active Substance: OLMESARTAN MEDOXOMIL
     Indication: HYPERTENSION
     Dosage: P.O
     Route: 048
  4. AMLODIPINE W/BISOPROLOL FUMARATE [Concomitant]
     Indication: HYPERTENSION
     Dosage: P.O.
     Route: 048
  5. METOPROLOL. [Suspect]
     Active Substance: METOPROLOL
     Indication: HYPERTENSION
     Dosage: P.O.
     Route: 048

REACTIONS (2)
  - Myopathy toxic [Unknown]
  - Drug ineffective [Unknown]
